FAERS Safety Report 8225648-8 (Version None)
Quarter: 2012Q1

REPORT INFORMATION
  Report Type: 
  Country: None (occurrence: None)
  Receive Date: 20120307
  Receipt Date: 20090601
  Transmission Date: 20120608
  Serious: No
  Sender: FDA-Public Use
  Company Number: PHEH2009US05143

PATIENT
  Age: 76 Year
  Sex: Male

DRUGS (8)
  1. DIOVAN [Concomitant]
  2. PEPCID [Concomitant]
  3. SODIUM BICARBONATE IN PLASTIC CONTAINER [Concomitant]
  4. AFINITOR [Suspect]
     Indication: RENAL CELL CARCINOMA
     Dosage: 10 MG, QD, ORAL
     Route: 048
     Dates: start: 20090305
  5. SYNTHROID [Concomitant]
  6. TEKTURNA [Concomitant]
  7. ALLOPURINOL [Concomitant]
  8. NORVASC [Concomitant]

REACTIONS (1)
  - THROMBOCYTOPENIA [None]
